FAERS Safety Report 8598371-8 (Version None)
Quarter: 2012Q3

REPORT INFORMATION
  Report Type: 
  Country: None (occurrence: None)
  Receive Date: 20120816
  Receipt Date: 20120813
  Transmission Date: 20120928
  Serious: No
  Sender: FDA-Public Use
  Company Number: US-PFIZER INC-2012169103

PATIENT
  Age: 77 Year
  Sex: Female
  Weight: 79.365 kg

DRUGS (2)
  1. ZYVOX [Suspect]
     Indication: INFECTION
     Dosage: 600 MG, 2X/DAY
     Dates: start: 20120706, end: 20120701
  2. LIPITOR [Concomitant]
     Indication: BLOOD CHOLESTEROL INCREASED
     Dosage: 20 MG, DAILY

REACTIONS (10)
  - DYSPEPSIA [None]
  - LIMB DISCOMFORT [None]
  - DRUG INEFFECTIVE [None]
  - RASH [None]
  - ORAL MUCOSAL BLISTERING [None]
  - OROPHARYNGEAL PAIN [None]
  - SKIN ODOUR ABNORMAL [None]
  - CHEST PAIN [None]
  - MOUTH ULCERATION [None]
  - MOVEMENT DISORDER [None]
